FAERS Safety Report 5732553-5 (Version None)
Quarter: 2008Q2

REPORT INFORMATION
  Report Type: 
  Country: None (occurrence: None)
  Receive Date: 20080507
  Receipt Date: 20080424
  Transmission Date: 20081010
  Serious: Yes (Hospitalization)
  Sender: FDA-Public Use
  Company Number: AR_42/08

PATIENT

DRUGS (1)
  1. SODIUM IODIDE I 131 [Suspect]

REACTIONS (10)
  - ARTERIAL DISORDER [None]
  - ATRIAL FIBRILLATION [None]
  - CARDIAC FAILURE [None]
  - CEREBROVASCULAR DISORDER [None]
  - FRACTURE [None]
  - GASTROINTESTINAL DISORDER [None]
  - HYPERTENSION [None]
  - INFECTION [None]
  - NEOPLASM MALIGNANT [None]
  - VEIN DISORDER [None]
